FAERS Safety Report 5947305-0 (Version None)
Quarter: 2008Q4

REPORT INFORMATION
  Report Type: 
  Country: None (occurrence: None)
  Receive Date: 20081110
  Receipt Date: 20081029
  Transmission Date: 20090506
  Serious: Yes (Hospitalization)
  Sender: FDA-Public Use
  Company Number: IT-PFIZER INC-2008085682

PATIENT
  Sex: Female
  Weight: 60 kg

DRUGS (6)
  1. SU-011,248 [Suspect]
     Indication: BREAST CANCER
     Route: 048
     Dates: start: 20080905, end: 20081008
  2. CAPECITABINE [Suspect]
     Indication: BREAST CANCER
     Route: 048
     Dates: start: 20080908
  3. SOLDESAM [Concomitant]
     Indication: PROPHYLAXIS
     Dosage: DAILY DOSE:20MG-FREQ:DAILY
     Dates: start: 20080806
  4. TORADOL [Concomitant]
     Indication: PAIN
     Dosage: DAILY DOSE:60MG-FREQ:DAILY
     Dates: start: 20080806
  5. BISOPROLOL FUMARATE [Concomitant]
     Indication: HYPERTENSION
     Dosage: DAILY DOSE:5MG-FREQ:DAILY
     Dates: start: 20080821
  6. MEPRAL [Concomitant]
     Indication: GASTRIC DISORDER
     Dosage: DAILY DOSE:20MG-FREQ:DAILY
     Dates: start: 20080821

REACTIONS (4)
  - ABDOMINAL PAIN UPPER [None]
  - DIARRHOEA [None]
  - ELECTROCARDIOGRAM ST-T SEGMENT DEPRESSION [None]
  - HYPERTENSION [None]
